FAERS Safety Report 12519449 (Version 2)
Quarter: 2016Q3

REPORT INFORMATION
  Report Type: Spontaneous
  Country: US (occurrence: US)
  Receive Date: 20160630
  Receipt Date: 20160720
  Transmission Date: 20161109
  Serious: Yes (Other)
  Sender: FDA-Public Use
  Company Number: US-GLAXOSMITHKLINE-US2016GSK093236

PATIENT
  Age: 69 Year
  Sex: Female

DRUGS (4)
  1. ADVAIR HFA [Suspect]
     Active Substance: FLUTICASONE PROPIONATE\SALMETEROL XINAFOATE
     Indication: BRONCHITIS
     Dosage: UNK, U
  2. ADVAIR HFA [Suspect]
     Active Substance: FLUTICASONE PROPIONATE\SALMETEROL XINAFOATE
     Indication: CHRONIC OBSTRUCTIVE PULMONARY DISEASE
  3. ADVAIR HFA [Suspect]
     Active Substance: FLUTICASONE PROPIONATE\SALMETEROL XINAFOATE
     Indication: DYSPNOEA
  4. ADVAIR HFA [Suspect]
     Active Substance: FLUTICASONE PROPIONATE\SALMETEROL XINAFOATE
     Indication: EMPHYSEMA
     Dosage: UNK, U, 250/50 MCG
     Dates: start: 2000

REACTIONS (17)
  - Vein collapse [Unknown]
  - Dyspnoea [Unknown]
  - Sputum discoloured [Unknown]
  - Malaise [Unknown]
  - Aortic occlusion [Unknown]
  - Peripheral arterial occlusive disease [Not Recovered/Not Resolved]
  - Bladder neck suspension [Unknown]
  - Implant site infection [Not Recovered/Not Resolved]
  - Blood cholesterol increased [Not Recovered/Not Resolved]
  - Off label use [Unknown]
  - Myocardial infarction [Unknown]
  - Coronary artery bypass [Unknown]
  - Arterial stent insertion [Unknown]
  - Productive cough [Unknown]
  - Surgery [Unknown]
  - Aortic valve replacement [Unknown]
  - Device breakage [Not Recovered/Not Resolved]

NARRATIVE: CASE EVENT DATE: 2000
